FAERS Safety Report 18811409 (Version 2)
Quarter: 2021Q1

REPORT INFORMATION
  Report Type: Report from Study
  Country: CH (occurrence: CH)
  Receive Date: 20210129
  Receipt Date: 20210301
  Transmission Date: 20210419
  Serious: Yes (Death, Other)
  Sender: FDA-Public Use
  Company Number: CH-BRISTOL-MYERS SQUIBB COMPANY-BMS-2020-086609

PATIENT
  Age: 57 Year
  Sex: Female

DRUGS (2)
  1. IPILIMUMAB [Suspect]
     Active Substance: IPILIMUMAB
     Indication: ENDOMETRIAL CANCER METASTATIC
     Dosage: 1 MILLIGRAM/KILOGRAM Q6W X 4
     Route: 065
     Dates: start: 20201019
  2. NIVOLUMAB [Suspect]
     Active Substance: NIVOLUMAB
     Indication: ENDOMETRIAL CANCER METASTATIC
     Dosage: 3 MILLIGRAM/KILOGRAM, Q2WK
     Route: 065
     Dates: start: 20201019

REACTIONS (3)
  - Intentional product use issue [Unknown]
  - Malignant neoplasm progression [Fatal]
  - Renal failure [Fatal]
